FAERS Safety Report 26156927 (Version 2)
Quarter: 2025Q4

REPORT INFORMATION
  Report Type: Report from Study
  Country: US (occurrence: US)
  Receive Date: 20251215
  Receipt Date: 20251230
  Transmission Date: 20260117
  Serious: Yes (Hospitalization, Other)
  Sender: ETON PHARMACEUTICALS, INC
  Company Number: US-ETON-2025ETO000636

PATIENT

DRUGS (9)
  1. ALKINDI SPRINKLE [Suspect]
     Active Substance: HYDROCORTISONE
     Indication: Adrenogenital syndrome
     Dosage: 2 MILLIGRAM, 5MG AT 7AM, 2MG AT 12PM, 2MG AT 4PM AND 2MG AT 8PM
     Route: 048
  2. ALKINDI SPRINKLE [Suspect]
     Active Substance: HYDROCORTISONE
     Dosage: 5 MILLIGRAM, 5MG AT 7AM, 2MG AT 12PM, 2MG AT 4PM AND 2MG AT 8PM
     Route: 048
  3. ALKINDI SPRINKLE [Suspect]
     Active Substance: HYDROCORTISONE
     Dosage: 5 MILLIGRAM, 5MG IN THE MORNING, 2.5MG IN THE AFTERNOON AND 2.5MG IN THE EVENING BY MOUTH
     Route: 048
     Dates: start: 20240610
  4. ALKINDI SPRINKLE [Suspect]
     Active Substance: HYDROCORTISONE
     Dosage: 2 MILLIGRAM, 5MG IN THE MORNING, 2.5MG IN THE AFTERNOON AND 2.5MG IN THE EVENING BY MOUTH
     Route: 048
     Dates: start: 20240610
  5. ALKINDI SPRINKLE [Suspect]
     Active Substance: HYDROCORTISONE
     Dosage: 0.5 MILLIGRAM, 5MG IN THE MORNING, 2.5MG IN THE AFTERNOON AND 2.5MG IN THE EVENING
     Route: 048
     Dates: start: 20240610
  6. ALKINDI SPRINKLE [Suspect]
     Active Substance: HYDROCORTISONE
     Dosage: STRESS DOSE, 10 MILLIGRAM, TID
     Route: 048
  7. HYDROCORTISONE SODIUM SUCCINATE [Concomitant]
     Active Substance: HYDROCORTISONE SODIUM SUCCINATE
     Indication: Product used for unknown indication
     Dosage: 50 MILLIGRAM, GIVE INJECTION AS NEEDED FOR MAJOR ILLNESS, PASSED OUT. OR TRAUMA
     Route: 030
  8. CRINECERFONT [Concomitant]
     Active Substance: CRINECERFONT
     Indication: Product used for unknown indication
     Dosage: 0.5 MILLILITER, BID
     Route: 048
  9. ONDANSETRON ODT [ONDANSETRON] [Concomitant]
     Indication: Product used for unknown indication
     Dosage: 2 MILLIGRAM, Q8H
     Route: 048

REACTIONS (2)
  - Adrenocortical insufficiency acute [Recovered/Resolved]
  - Pharyngitis streptococcal [Unknown]

NARRATIVE: CASE EVENT DATE: 20251110
